FAERS Safety Report 25036436 (Version 2)
Quarter: 2025Q1

REPORT INFORMATION
  Report Type: Spontaneous
  Country: CN (occurrence: CN)
  Receive Date: 20250304
  Receipt Date: 20250326
  Transmission Date: 20250408
  Serious: Yes (Death, Other)
  Sender: RANBAXY
  Company Number: CN-SUN PHARMACEUTICAL INDUSTRIES LTD-2025R1-497053

PATIENT
  Age: 28 Year
  Sex: Male

DRUGS (6)
  1. LEUCOVORIN CALCIUM [Suspect]
     Active Substance: LEUCOVORIN CALCIUM
     Indication: Intestinal adenocarcinoma
     Route: 042
     Dates: start: 202012
  2. IRINOTECAN [Suspect]
     Active Substance: IRINOTECAN
     Indication: Intestinal adenocarcinoma
     Route: 042
     Dates: start: 202108
  3. OXALIPLATIN [Suspect]
     Active Substance: OXALIPLATIN
     Indication: Intestinal adenocarcinoma
     Route: 042
     Dates: start: 202012
  4. FLUOROURACIL [Suspect]
     Active Substance: FLUOROURACIL
     Indication: Intestinal adenocarcinoma
     Route: 042
     Dates: start: 202012
  5. TRASTUZUMAB [Suspect]
     Active Substance: TRASTUZUMAB
     Indication: Intestinal adenocarcinoma
     Route: 042
     Dates: start: 202012
  6. TRASTUZUMAB [Suspect]
     Active Substance: TRASTUZUMAB
     Route: 042

REACTIONS (3)
  - Neoplasm progression [Fatal]
  - Intestinal obstruction [Unknown]
  - Sinus bradycardia [Unknown]

NARRATIVE: CASE EVENT DATE: 20211201
